FAERS Safety Report 4602475-1 (Version None)
Quarter: 2005Q1

REPORT INFORMATION
  Report Type: 
  Country: None (occurrence: None)
  Receive Date: 20050309
  Receipt Date: 20050304
  Transmission Date: 20050727
  Serious: Yes (Death, Life-Threatening, Hospitalization)
  Sender: FDA-Public Use
  Company Number: 200510449DE

PATIENT
  Age: 67 Year
  Sex: Female
  Weight: 114 kg

DRUGS (2)
  1. ARAVA [Suspect]
     Indication: POLYARTHRITIS
     Route: 048
     Dates: start: 20030101, end: 20040101
  2. METHOTREXATE [Suspect]
     Indication: POLYARTHRITIS
     Route: 030

REACTIONS (9)
  - CARBOHYDRATE ANTIGEN 125 INCREASED [None]
  - COAGULOPATHY [None]
  - DRUG TOXICITY [None]
  - FEELING ABNORMAL [None]
  - GENERAL PHYSICAL HEALTH DETERIORATION [None]
  - HAEMOLYTIC ANAEMIA [None]
  - HEPATIC FAILURE [None]
  - HEPATIC NECROSIS [None]
  - OEDEMA PERIPHERAL [None]
